FAERS Safety Report 6392609-3 (Version None)
Quarter: 2009Q4

REPORT INFORMATION
  Report Type: 
  Country: None (occurrence: None)
  Receive Date: 20091007
  Receipt Date: 20090706
  Transmission Date: 20100525
  Serious: No
  Sender: FDA-Public Use
  Company Number: US-ALLERGAN-0909501US

PATIENT
  Sex: Female

DRUGS (7)
  1. LATISSE [Suspect]
     Indication: HYPOTRICHOSIS
     Dosage: 1 GTT, QHS
     Route: 061
     Dates: start: 20090501
  2. LATISSE [Suspect]
     Indication: HAIR GROWTH ABNORMAL
  3. LATISSE [Suspect]
  4. ESTROGEN [Concomitant]
     Indication: MENOPAUSE
  5. PROGESTIN [Concomitant]
     Indication: MENOPAUSE
  6. FOSAMAX [Concomitant]
     Indication: OSTEOPOROSIS
  7. PRAVACHOL [Concomitant]
     Indication: BLOOD CHOLESTEROL INCREASED

REACTIONS (4)
  - DRUG ADMINISTERED AT INAPPROPRIATE SITE [None]
  - DRUG ADMINISTRATION ERROR [None]
  - ERYTHEMA OF EYELID [None]
  - EYELID VASCULAR DISORDER [None]
